FAERS Safety Report 19015562 (Version 2)
Quarter: 2021Q2

REPORT INFORMATION
  Report Type: Spontaneous
  Country: FR (occurrence: FR)
  Receive Date: 20210317
  Receipt Date: 20210429
  Transmission Date: 20210717
  Serious: Yes (Other)
  Sender: FDA-Public Use
  Company Number: FR-ALXN-A202103291

PATIENT
  Age: 42 Year
  Sex: Male
  Weight: 48 kg

DRUGS (26)
  1. SOLIRIS [Suspect]
     Active Substance: ECULIZUMAB
     Indication: PROPHYLAXIS AGAINST TRANSPLANT REJECTION
     Dosage: 900 MG, SINGLE ADMINISTRATION
     Route: 042
     Dates: start: 20180119, end: 20180119
  2. SOLIRIS [Suspect]
     Active Substance: ECULIZUMAB
     Indication: OFF LABEL USE
  3. BELIMUMAB [Suspect]
     Active Substance: BELIMUMAB
     Dosage: DAY 22: 800 MG, UNK
     Route: 042
  4. SULFAMETHOXAZOLE AND TRIMETHOPRIM [Concomitant]
     Active Substance: SULFAMETHOXAZOLE\TRIMETHOPRIM
     Indication: PROPHYLAXIS
     Dosage: 800 MG, 0.33 WEEK
     Route: 065
  5. SOLIRIS [Suspect]
     Active Substance: ECULIZUMAB
     Indication: TRANSPLANT
  6. METHYLPREDNISOLONE. [Suspect]
     Active Substance: METHYLPREDNISOLONE
     Dosage: DAY 3?4: 125 MG, UNK
     Route: 042
  7. METHYLPREDNISOLONE. [Suspect]
     Active Substance: METHYLPREDNISOLONE
     Dosage: DAY 7?24: 20 MG, UNK
     Route: 042
  8. METHYLPREDNISOLONE. [Suspect]
     Active Substance: METHYLPREDNISOLONE
     Dosage: DAY 25?28: 1 G, UNK
     Route: 042
  9. RITUXIMAB. [Suspect]
     Active Substance: RITUXIMAB
     Indication: PROPHYLAXIS AGAINST TRANSPLANT REJECTION
     Dosage: DAY ?20: 600 MG, UNK
     Route: 042
  10. SERTRALINE [Concomitant]
     Active Substance: SERTRALINE HYDROCHLORIDE
     Indication: PRODUCT USED FOR UNKNOWN INDICATION
     Dosage: UNK
     Route: 065
  11. PRIVIGEN [Concomitant]
     Active Substance: HUMAN IMMUNOGLOBULIN G
     Indication: PRODUCT USED FOR UNKNOWN INDICATION
     Dosage: UNK
     Route: 065
  12. BELIMUMAB [Suspect]
     Active Substance: BELIMUMAB
     Indication: PROPHYLAXIS AGAINST TRANSPLANT REJECTION
     Dosage: DAY 1: 520 MG, UNK
     Route: 042
  13. RITUXIMAB. [Suspect]
     Active Substance: RITUXIMAB
     Dosage: DAY 21: 500 MG, UNK
     Route: 042
  14. DIAZEPAM. [Concomitant]
     Active Substance: DIAZEPAM
     Indication: PRODUCT USED FOR UNKNOWN INDICATION
     Dosage: UNK
     Route: 065
  15. METHYLPREDNISOLONE. [Suspect]
     Active Substance: METHYLPREDNISOLONE
     Indication: PROPHYLAXIS AGAINST TRANSPLANT REJECTION
     Dosage: DAY 1: 250 MG (25 DOSES), UNK
     Route: 042
  16. BELIMUMAB [Suspect]
     Active Substance: BELIMUMAB
     Dosage: DAY 8: 750 MG, UNK
     Route: 042
  17. RITUXIMAB. [Suspect]
     Active Substance: RITUXIMAB
     Dosage: DAY 7: 600 MG, UNK
     Route: 042
  18. OLANZAPINE. [Concomitant]
     Active Substance: OLANZAPINE
     Indication: PRODUCT USED FOR UNKNOWN INDICATION
     Dosage: UNK
     Route: 065
  19. RITUXIMAB. [Suspect]
     Active Substance: RITUXIMAB
     Dosage: DAY 14: 500 MG, UNK
     Route: 042
  20. TACROLIMUS. [Suspect]
     Active Substance: TACROLIMUS
     Indication: PROPHYLAXIS AGAINST TRANSPLANT REJECTION
     Dosage: PLASMA LEVELS AT 10?15 NG/ML, UNK
     Route: 065
  21. ANTITHYMOCYTE IMMUNOGLOBULIN [Suspect]
     Active Substance: THYMOCYTE IMMUNE GLOBULIN NOS
     Indication: PROPHYLAXIS AGAINST TRANSPLANT REJECTION
     Dosage: 75 MG, QD
     Route: 065
  22. HALOPERIDOL. [Concomitant]
     Active Substance: HALOPERIDOL
     Indication: PRODUCT USED FOR UNKNOWN INDICATION
     Dosage: UNK
     Route: 065
  23. BELIMUMAB [Suspect]
     Active Substance: BELIMUMAB
     Dosage: DAY 15: 750 MG, UNK
     Route: 042
  24. MYCOPHENOLATE MOFETIL. [Suspect]
     Active Substance: MYCOPHENOLATE MOFETIL
     Indication: PROPHYLAXIS AGAINST TRANSPLANT REJECTION
     Dosage: AREA UNDER THE CURVE AT 40?60 NG/ML, UNK
     Route: 065
  25. PREDNISOLONE. [Suspect]
     Active Substance: PREDNISOLONE
     Indication: PROPHYLAXIS AGAINST TRANSPLANT REJECTION
     Dosage: UNK
     Route: 048
  26. VALGANCICLOVIR HYDROCHLORIDE. [Concomitant]
     Active Substance: VALGANCICLOVIR HYDROCHLORIDE
     Indication: PROPHYLAXIS
     Dosage: 6 MONTHS, UNK
     Route: 065

REACTIONS (11)
  - Pancytopenia [Unknown]
  - Weight decreased [Unknown]
  - Diarrhoea [Unknown]
  - Stoma site infection [Unknown]
  - Gastroenteritis norovirus [Unknown]
  - Oesophageal disorder [Unknown]
  - Pneumonia aspiration [Unknown]
  - Cytomegalovirus oesophagitis [Unknown]
  - Cardiac arrest [Unknown]
  - Oesophageal achalasia [Unknown]
  - Off label use [Unknown]

NARRATIVE: CASE EVENT DATE: 20180119
